FAERS Safety Report 8977683 (Version 2)
Quarter: 2013Q1

REPORT INFORMATION
  Report Type: Spontaneous
  Country: JP (occurrence: JP)
  Receive Date: 20121220
  Receipt Date: 20130103
  Transmission Date: 20140127
  Serious: Yes (Hospitalization)
  Sender: FDA-Public Use
  Company Number: JP-PFIZER INC-2012321918

PATIENT
  Age: 7 Decade
  Sex: Male

DRUGS (5)
  1. CISPLATIN [Suspect]
     Indication: GASTRIC CANCER STAGE III
     Dosage: 60 MG/M2, CYCLIC
     Route: 065
     Dates: start: 200904
  2. IRINOTECAN HCL [Suspect]
     Indication: GASTRIC CANCER STAGE III
     Dosage: 150 MG/M2, CYCLIC
     Route: 065
  3. TEGAFUR/GIMERACIL/OTERACIL POTASSIUM [Suspect]
     Indication: GASTRIC CANCER STAGE III
     Dosage: 80 MG/M2, CYCLIC
     Route: 065
     Dates: start: 200904
  4. DEXAMETHASONE [Concomitant]
     Indication: MALAISE
     Dosage: UNK
  5. DEXAMETHASONE [Concomitant]
     Indication: NAUSEA

REACTIONS (3)
  - Pneumocystis jirovecii pneumonia [Not Recovered/Not Resolved]
  - Acute respiratory failure [Not Recovered/Not Resolved]
  - Pyrexia [Not Recovered/Not Resolved]
